FAERS Safety Report 13553611 (Version 1)
Quarter: 2017Q2

REPORT INFORMATION
  Report Type: Spontaneous
  Country: BR (occurrence: BR)
  Receive Date: 20170517
  Receipt Date: 20170517
  Transmission Date: 20170830
  Serious: Yes (Hospitalization, Other)
  Sender: FDA-Public Use
  Company Number: BR-PURDUE-GBR-2017-0045409

PATIENT
  Age: 87 Year
  Sex: Female

DRUGS (11)
  1. TYLEX                              /00116401/ [Concomitant]
     Active Substance: ACETAMINOPHEN\CODEINE PHOSPHATE
     Indication: PAIN
     Dosage: 1 TABLET, DAILY
     Route: 048
     Dates: start: 20170430
  2. GABAPENTIN. [Concomitant]
     Active Substance: GABAPENTIN
     Indication: NEURALGIA
  3. CRESTOR [Concomitant]
     Active Substance: ROSUVASTATIN CALCIUM
     Indication: BLOOD CHOLESTEROL
     Dosage: 5 MG, DAILY
     Route: 048
  4. RESTIVA [Suspect]
     Active Substance: BUPRENORPHINE
     Dosage: 5 MCG, Q1H (STRENGTH 5MG)
     Route: 062
     Dates: start: 201601, end: 201610
  5. GABAPENTIN. [Concomitant]
     Active Substance: GABAPENTIN
     Indication: HEADACHE
     Dosage: 300 MG, DAILY
     Route: 048
  6. VANNAIR [Concomitant]
     Active Substance: BUDESONIDE\FORMOTEROL FUMARATE DIHYDRATE
     Indication: DYSPNOEA
     Dosage: 1 UNK, DAILY
     Route: 048
     Dates: start: 201604
  7. ATACAND [Concomitant]
     Active Substance: CANDESARTAN CILEXETIL
     Indication: HYPERTENSION
     Dosage: ONE AND HALF TABLET, DAILY
     Route: 048
  8. LANZOPRAZOL [Concomitant]
     Active Substance: LANSOPRAZOLE
     Indication: PROPHYLAXIS
     Dosage: 30 MG, DAILY
     Route: 048
  9. APIXABAN [Concomitant]
     Active Substance: APIXABAN
     Indication: ANTICOAGULANT THERAPY
     Dosage: 2 TABLET, DAILY
     Route: 048
  10. RESTIVA [Suspect]
     Active Substance: BUPRENORPHINE
     Indication: BACK PAIN
     Dosage: 2.5 MCG, Q1H (STRENGTH 5MG)
     Route: 062
     Dates: start: 201612
  11. RESTIVA [Suspect]
     Active Substance: BUPRENORPHINE
     Indication: ARTHRALGIA
     Dosage: 10 MCG, Q1H (STRENGTH 10MG)
     Route: 062
     Dates: start: 201610, end: 201612

REACTIONS (11)
  - Drug ineffective [Unknown]
  - Off label use [Not Recovered/Not Resolved]
  - Irritability [Unknown]
  - Peripheral swelling [Unknown]
  - Blood pressure increased [Unknown]
  - Chest pain [Unknown]
  - Blood pressure abnormal [Not Recovered/Not Resolved]
  - Urticaria [Unknown]
  - Dermatitis [Not Recovered/Not Resolved]
  - Insomnia [Unknown]
  - Erythema [Unknown]

NARRATIVE: CASE EVENT DATE: 201610
